FAERS Safety Report 7775263-5 (Version None)
Quarter: 2011Q3

REPORT INFORMATION
  Report Type: 
  Country: None (occurrence: None)
  Receive Date: 20110921
  Receipt Date: 20110830
  Transmission Date: 20111222
  Serious: Yes (Hospitalization)
  Sender: FDA-Public Use
  Company Number: 2011SE33906

PATIENT
  Age: 39 Year
  Sex: Female

DRUGS (6)
  1. FAMOTIDINE [Concomitant]
  2. BETAMETHASONE [Concomitant]
  3. NEORAL [Concomitant]
  4. FOSCAVIR [Suspect]
     Indication: CYTOMEGALOVIRUS INFECTION
     Dosage: 190 ML BID, INTRAVENOUS DRIP
     Route: 041
     Dates: start: 20110525, end: 20110531
  5. COTRIM [Concomitant]
  6. FOSMAC (ALENDRONIC ACID) [Concomitant]

REACTIONS (3)
  - LEUKOPENIA [None]
  - INTERSTITIAL LUNG DISEASE [None]
  - PNEUMONIA [None]
